FAERS Safety Report 7956198-1 (Version None)
Quarter: 2011Q4

REPORT INFORMATION
  Report Type: 
  Country: None (occurrence: None)
  Receive Date: 20111205
  Receipt Date: 20111123
  Transmission Date: 20120403
  Serious: Yes (Hospitalization)
  Sender: FDA-Public Use
  Company Number: BR-US-EMD SERONO, INC.-7091547

PATIENT
  Sex: Female

DRUGS (6)
  1. SIMVASTATIN [Concomitant]
  2. METFORMIN HCL [Concomitant]
  3. BACLOFEN [Concomitant]
  4. ACETAMINOPHEN [Concomitant]
  5. GLYBURIDE [Concomitant]
  6. REBIF [Suspect]
     Indication: MULTIPLE SCLEROSIS
     Dates: start: 20070423

REACTIONS (1)
  - MULTIPLE SCLEROSIS RELAPSE [None]
